FAERS Safety Report 7265273-9 (Version None)
Quarter: 2011Q1

REPORT INFORMATION
  Report Type: 
  Country: None (occurrence: None)
  Receive Date: 20110131
  Receipt Date: 20110124
  Transmission Date: 20110831
  Serious: Yes (Death, Hospitalization)
  Sender: FDA-Public Use
  Company Number: DE-JNJFOC-20100100127

PATIENT
  Sex: Female

DRUGS (5)
  1. ACETYLSALICYLIC ACID SRT [Concomitant]
  2. CLOPIDOGREL [Concomitant]
  3. REOPRO [Suspect]
     Dosage: @17:45
     Route: 042
  4. REOPRO [Suspect]
     Indication: ACUTE MYOCARDIAL INFARCTION
     Dosage: FROM 17:46 TO 06:00
     Route: 042
  5. HEPARIN [Concomitant]

REACTIONS (2)
  - PNEUMONIA [None]
  - ACUTE RESPIRATORY DISTRESS SYNDROME [None]
